FAERS Safety Report 7097301-8 (Version None)
Quarter: 2010Q4

REPORT INFORMATION
  Report Type: 
  Country: None (occurrence: None)
  Receive Date: 20101111
  Receipt Date: 20100120
  Transmission Date: 20110411
  Serious: No
  Sender: FDA-Public Use
  Company Number: US-KINGPHARMUSA00001-K201000083

PATIENT
  Age: 68 Year
  Sex: Female
  Weight: 63.492 kg

DRUGS (5)
  1. SKELAXIN [Suspect]
     Indication: MUSCLE SPASMS
     Dosage: 800 MG, TWO DOSES
     Route: 048
  2. HYDROCODONE [Concomitant]
     Indication: BACK PAIN
     Dosage: UNK
  3. PLAVIX [Concomitant]
     Dosage: UNK
  4. PRAVASTATIN [Concomitant]
     Dosage: UNK
  5. JANUMET [Concomitant]
     Indication: DIABETES MELLITUS
     Dosage: UNK

REACTIONS (5)
  - ABDOMINAL DISCOMFORT [None]
  - GASTROINTESTINAL DISORDER [None]
  - INSOMNIA [None]
  - SOMNOLENCE [None]
  - TENSION [None]
